FAERS Safety Report 22348880 (Version 1)
Quarter: 2023Q2

REPORT INFORMATION
  Report Type: Spontaneous
  Country: US (occurrence: US)
  Receive Date: 20230522
  Receipt Date: 20230522
  Transmission Date: 20230721
  Serious: Yes (Other)
  Sender: FDA-Public Use
  Company Number: US-ASTELLAS-2023US015260

PATIENT
  Age: 64 Year
  Sex: Female

DRUGS (13)
  1. XOSPATA [Suspect]
     Active Substance: GILTERITINIB
     Indication: Acute myeloid leukaemia
     Dosage: UNK UNK, UNKNOWN FREQ.
     Route: 065
  2. XOSPATA [Suspect]
     Active Substance: GILTERITINIB
     Dosage: UNK, UNKNOWN FREQ. (SECOND ROUND)
     Route: 065
     Dates: start: 202202
  3. XOSPATA [Suspect]
     Active Substance: GILTERITINIB
     Dosage: UNK, UNKNOWN FREQ. (THIRD ROUND)
     Route: 065
     Dates: start: 202203
  4. MAGNESIUM [Concomitant]
     Active Substance: MAGNESIUM
     Indication: Product used for unknown indication
     Dosage: UNK UNK, UNKNOWN FREQ.
     Route: 065
  5. CALCIUM\VITAMIN D [Concomitant]
     Active Substance: CALCIUM\VITAMIN D
     Indication: Product used for unknown indication
     Dosage: UNK UNK, UNKNOWN FREQ.
     Route: 065
  6. ACYCLOVIR [Concomitant]
     Active Substance: ACYCLOVIR
     Indication: Product used for unknown indication
     Dosage: UNK UNK, UNKNOWN FREQ.
     Route: 065
  7. VENETOCLAX [Concomitant]
     Active Substance: VENETOCLAX
     Indication: Product used for unknown indication
     Dosage: UNK UNK, UNKNOWN FREQ.
     Route: 065
  8. VENETOCLAX [Concomitant]
     Active Substance: VENETOCLAX
     Dosage: UNK, UNKNOWN FREQ. (SECOND ROUND)
     Route: 065
     Dates: start: 202202
  9. VENETOCLAX [Concomitant]
     Active Substance: VENETOCLAX
     Dosage: UNK, UNKNOWN FREQ. (THIRD ROUND)
     Dates: start: 202203
  10. DECITABINE [Concomitant]
     Active Substance: DECITABINE
     Indication: Product used for unknown indication
     Dosage: UNK UNK, UNKNOWN FREQ.
     Route: 065
  11. DECITABINE [Concomitant]
     Active Substance: DECITABINE
     Dosage: UNK, UNKNOWN FREQ. (SECOND ROUND)
     Route: 065
     Dates: start: 202202
  12. DECITABINE [Concomitant]
     Active Substance: DECITABINE
     Dosage: UNK, UNKNOWN FREQ. (THIRD ROUND)
     Route: 065
     Dates: start: 202203
  13. MIDOSTAURIN [Concomitant]
     Active Substance: MIDOSTAURIN
     Indication: Product used for unknown indication
     Dosage: UNK UNK, UNKNOWN FREQ.
     Route: 065
     Dates: start: 202110

REACTIONS (6)
  - Pleural effusion [Unknown]
  - Acquired amegakaryocytic thrombocytopenia [Unknown]
  - Anaemia macrocytic [Unknown]
  - Acute myeloid leukaemia recurrent [Unknown]
  - Pericardial effusion [Unknown]
  - Blood alkaline phosphatase increased [Unknown]

NARRATIVE: CASE EVENT DATE: 20221101
